FAERS Safety Report 16404154 (Version 1)
Quarter: 2019Q2

REPORT INFORMATION
  Report Type: Spontaneous
  Country: US (occurrence: US)
  Receive Date: 20190501
  Receipt Date: 20190501
  Transmission Date: 20190711
  Serious: Yes (Death)
  Sender: FDA-Public Use
  Company Number: None

PATIENT
  Age: 88 Year
  Sex: Female

DRUGS (1)
  1. REVLIMID [Suspect]
     Active Substance: LENALIDOMIDE
     Indication: DIFFUSE LARGE B-CELL LYMPHOMA
     Route: 048
     Dates: start: 201903, end: 201905

REACTIONS (4)
  - Oedema peripheral [None]
  - Hypotension [None]
  - Acute respiratory distress syndrome [None]
  - Lethargy [None]

NARRATIVE: CASE EVENT DATE: 20190501
